FAERS Safety Report 13962541 (Version 1)
Quarter: 2017Q3

REPORT INFORMATION
  Report Type: Spontaneous
  Country: GB (occurrence: GB)
  Receive Date: 20170913
  Receipt Date: 20170913
  Transmission Date: 20171128
  Serious: Yes (Other)
  Sender: FDA-Public Use
  Company Number: GB-009507513-1709GBR006017

PATIENT
  Age: 20 Year
  Sex: Female

DRUGS (3)
  1. NEXPLANON [Suspect]
     Active Substance: ETONOGESTREL
     Indication: CONTRACEPTION
     Route: 059
     Dates: start: 20170704, end: 20170704
  2. FERROUS SULFATE. [Concomitant]
     Active Substance: FERROUS SULFATE
  3. METRONIDAZOLE. [Concomitant]
     Active Substance: METRONIDAZOLE

REACTIONS (2)
  - Suppressed lactation [Not Recovered/Not Resolved]
  - Rash pruritic [Recovered/Resolved]

NARRATIVE: CASE EVENT DATE: 20170714
